FAERS Safety Report 7286489-1 (Version None)
Quarter: 2011Q1

REPORT INFORMATION
  Report Type: 
  Country: None (occurrence: None)
  Receive Date: 20110210
  Receipt Date: 20110201
  Transmission Date: 20110831
  Serious: Yes (Hospitalization)
  Sender: FDA-Public Use
  Company Number: JP-ROCHE-737919

PATIENT
  Sex: Male

DRUGS (24)
  1. ACTEMRA [Suspect]
     Route: 041
     Dates: start: 20081205, end: 20081205
  2. ACTEMRA [Suspect]
     Route: 041
     Dates: start: 20090326, end: 20090326
  3. URALYT [Concomitant]
     Route: 048
  4. PREDONINE [Suspect]
     Route: 048
     Dates: start: 20090326
  5. ACTEMRA [Suspect]
     Route: 041
     Dates: start: 20090227, end: 20090227
  6. ISONIAZID [Concomitant]
     Dosage: DRUG NAME REPORTED AS: HYDRA
     Route: 048
     Dates: start: 20081201
  7. LAC-B [Concomitant]
     Dosage: FORM: PERORAL AGENT
     Route: 048
  8. ACTEMRA [Suspect]
     Indication: RHEUMATOID ARTHRITIS
     Route: 041
     Dates: start: 20081107, end: 20081107
  9. RHEUMATREX [Concomitant]
     Dosage: FREQUENCY: THREE TIMES A WEEK.
     Route: 048
     Dates: start: 20081111
  10. ADALAT [Concomitant]
     Route: 048
  11. FOLIAMIN [Concomitant]
     Route: 048
  12. ACTEMRA [Suspect]
     Route: 041
     Dates: start: 20090107, end: 20090107
  13. ACTEMRA [Suspect]
     Route: 041
     Dates: start: 20090423, end: 20101005
  14. ADALAT [Concomitant]
     Route: 048
  15. THYRADIN S [Concomitant]
  16. PREDONINE [Suspect]
     Indication: RHEUMATOID ARTHRITIS
     Route: 048
     Dates: start: 20081030, end: 20090325
  17. ISCOTIN [Concomitant]
     Route: 048
     Dates: end: 20081228
  18. POLYFUL [Concomitant]
     Route: 048
  19. THYRADIN S [Concomitant]
  20. ACTEMRA [Suspect]
     Route: 041
     Dates: start: 20090129, end: 20090129
  21. RHEUMATREX [Concomitant]
     Dosage: FREQUENCY: THREE TIMES A WEEK.
     Route: 048
     Dates: start: 20081110
  22. CELCOX [Concomitant]
     Dosage: DRUG NAME REPORTED AS: CELECOX.
     Route: 048
     Dates: start: 20081223
  23. ACTEMRA [Suspect]
     Route: 041
     Dates: start: 20100101
  24. ZYLORIC [Concomitant]
     Route: 048

REACTIONS (3)
  - HYPERCHOLESTEROLAEMIA [None]
  - C-REACTIVE PROTEIN INCREASED [None]
  - LYMPHOCYTE COUNT DECREASED [None]
